FAERS Safety Report 8350569-X (Version None)
Quarter: 2012Q2

REPORT INFORMATION
  Report Type: 
  Country: None (occurrence: None)
  Receive Date: 20120510
  Receipt Date: 20120508
  Transmission Date: 20120825
  Serious: Yes (Other)
  Sender: FDA-Public Use
  Company Number: PHHY2012DE009462

PATIENT
  Sex: Female

DRUGS (4)
  1. CARBIMAZOL [Suspect]
     Dosage: 10 MG, QD
     Dates: start: 20110901, end: 20120131
  2. RAMIPRIL [Concomitant]
     Indication: HYPERTENSION
     Dosage: UNK UKN, UNK
     Dates: end: 20110131
  3. CITALOPRAM HYDROBROMIDE [Concomitant]
     Indication: DEPRESSION
     Dosage: 20 MG, DAILY
     Route: 048
     Dates: start: 20110411, end: 20110915
  4. GILENYA [Suspect]
     Indication: MULTIPLE SCLEROSIS
     Dosage: 0.5 MG, QD
     Route: 048
     Dates: start: 20111001, end: 20120131

REACTIONS (1)
  - THROMBOCYTOPENIA [None]
